FAERS Safety Report 11777420 (Version 1)
Quarter: 2015Q4

REPORT INFORMATION
  Report Type: Spontaneous
  Country: US (occurrence: US)
  Receive Date: 20151125
  Receipt Date: 20151125
  Transmission Date: 20160304
  Serious: No
  Sender: FDA-Public Use
  Company Number: US-MALLINCKRODT-T201505331

PATIENT
  Sex: Male

DRUGS (4)
  1. NORCO [Concomitant]
     Active Substance: ACETAMINOPHEN\HYDROCODONE BITARTRATE
     Dosage: 10/325 MG, ONE TABLET TID
  2. GABLOFEN [Suspect]
     Active Substance: BACLOFEN
     Dosage: 224.9 MCG/DAY
     Route: 037
     Dates: start: 20151111
  3. GABLOFEN [Suspect]
     Active Substance: BACLOFEN
     Indication: MUSCLE SPASTICITY
     Dosage: 549.5 MCG/DAY
     Route: 037
     Dates: start: 20150616, end: 20151111
  4. BACLOFEN. [Concomitant]
     Active Substance: BACLOFEN
     Dosage: 10 MG, TWO TID
     Route: 048

REACTIONS (1)
  - Treatment noncompliance [Recovered/Resolved]
